FAERS Safety Report 19368966 (Version 2)
Quarter: 2021Q2

REPORT INFORMATION
  Report Type: Spontaneous
  Country: NL (occurrence: NL)
  Receive Date: 20210603
  Receipt Date: 20210622
  Transmission Date: 20210717
  Serious: Yes (Hospitalization, Other)
  Sender: FDA-Public Use
  Company Number: CA-FRESENIUS KABI-FK202105523

PATIENT
  Age: 77 Year
  Sex: Female

DRUGS (163)
  1. LEVOFLOXACIN (MANUFACTURER UNKNOWN) (LEVOFLOXACIN) (LEVOFLOXACIN) [Suspect]
     Active Substance: LEVOFLOXACIN
     Indication: PRODUCT USED FOR UNKNOWN INDICATION
  2. LEVOTHYROXINE SODIUM (LEVOTHYROXINE SODIUM) [Suspect]
     Active Substance: LEVOTHYROXINE SODIUM
     Indication: RADIOACTIVE IODINE THERAPY
  3. AMITRIPTYLINE HYDROCHLORIDE (AMITRIPTYLINE HYDROCHLORIDE) (TABLET) (AMITRIPTYLINE HYDROCHLORIDE) [Suspect]
     Active Substance: AMITRIPTYLINE HYDROCHLORIDE
     Indication: DUODENAL ULCER
  4. MORPHNE SULFATE (MORPHINE SULFATE) [Suspect]
     Active Substance: MORPHINE SULFATE
     Indication: PAIN
  5. MORPHNE SULFATE (MORPHINE SULFATE) [Suspect]
     Active Substance: MORPHINE SULFATE
     Indication: FIBROMYALGIA
  6. FUROSEMIDE (FUROSEMIDE) [Suspect]
     Active Substance: FUROSEMIDE
     Indication: CHEST PAIN
  7. ACEBUTOLOL HYDROCHLORIDE (ACEBUTOLOL HYDROCHLORIDE) [Suspect]
     Active Substance: ACEBUTOLOL HYDROCHLORIDE
     Indication: HYPERTENSION
  8. GLYCERYL TRINITRATE (GLYCERYL TRINITRATE) [Suspect]
     Active Substance: NITROGLYCERIN
     Indication: ANGINA PECTORIS
  9. ROSUVASTATIN CALCIUM (ROSUVASTATIN CALCIUM) [Suspect]
     Active Substance: ROSUVASTATIN CALCIUM
     Indication: CHEST PAIN
     Route: 048
  10. GLYCERYL TRINITRATE (GLYCERYL TRINITRATE) [Suspect]
     Active Substance: NITROGLYCERIN
     Indication: CHEST PAIN
  11. CAFFEINE, PARACETAMOL (CAFFEINE, PARACETAMOL) [Suspect]
     Active Substance: ACETAMINOPHEN\CAFFEINE
     Indication: HYPERTENSION
  12. CAFFEINE, PARACETAMOL (CAFFEINE, PARACETAMOL) [Suspect]
     Active Substance: ACETAMINOPHEN\CAFFEINE
     Indication: ANGINA PECTORIS
  13. CAFFEINE, PARACETAMOL (CAFFEINE, PARACETAMOL) [Suspect]
     Active Substance: ACETAMINOPHEN\CAFFEINE
     Indication: CEREBROVASCULAR ACCIDENT
  14. ROSUVASTATIN (ROSUVASTATIN) [Suspect]
     Active Substance: ROSUVASTATIN
     Indication: CORONARY ARTERY DISEASE
     Route: 048
  15. AMLODIPINE [Suspect]
     Active Substance: AMLODIPINE BESYLATE
     Indication: ANGINA PECTORIS
  16. GALANTAMINE HYDROBROMIDE (GALANTAMINE HYDROBROMIDE) [Suspect]
     Active Substance: GALANTAMINE HYDROBROMIDE
     Indication: DEMENTIA
  17. PARACETAMOL (PARACETAMOL) [Suspect]
     Active Substance: ACETAMINOPHEN
     Indication: PAIN
  18. OXAZEPAM (OXAZEPAM) [Suspect]
     Active Substance: OXAZEPAM
     Indication: INSOMNIA
  19. DILTIAZEM HYDROCHLORIDE (DILTIAZEM HYDROCHLORIDE) [Suspect]
     Active Substance: DILTIAZEM HYDROCHLORIDE
     Indication: CORONARY ARTERY DISEASE
  20. ASCORBIC ACID, VACCINIUM MACROCARPON (ASCORBIC ACID, VACCINIUM MACROCARPON) [Concomitant]
  21. AMITRIPTYLINE HYDROCHLORIDE (AMITRIPTYLINE HYDROCHLORIDE) (TABLET) (AMITRIPTYLINE HYDROCHLORIDE) [Suspect]
     Active Substance: AMITRIPTYLINE HYDROCHLORIDE
     Indication: PRODUCT USED FOR UNKNOWN INDICATION
  22. AMITRIPTYLINE HYDROCHLORIDE (AMITRIPTYLINE HYDROCHLORIDE) (TABLET) (AMITRIPTYLINE HYDROCHLORIDE) [Suspect]
     Active Substance: AMITRIPTYLINE HYDROCHLORIDE
     Indication: ANGINA PECTORIS
  23. OXAZEPAM (OXAZEPAM) [Suspect]
     Active Substance: OXAZEPAM
     Indication: CORONARY ARTERY DISEASE
  24. LACTULOSE (LACTULOSE) [Suspect]
     Active Substance: LACTULOSE
     Indication: CONSTIPATION
     Route: 048
  25. OXCARBAZEPINE (OXCARBAZEPINE) [Suspect]
     Active Substance: OXCARBAZEPINE
     Indication: PRODUCT USED FOR UNKNOWN INDICATION
  26. FUROSEMIDE (FUROSEMIDE) [Suspect]
     Active Substance: FUROSEMIDE
     Indication: PRODUCT USED FOR UNKNOWN INDICATION
  27. AMLODIPINE BESILATE (AMLODIPINE BESILATE) [Suspect]
     Active Substance: AMLODIPINE BESYLATE
     Indication: PRODUCT USED FOR UNKNOWN INDICATION
  28. CYCLOBENZAPRINE HYDROCHLORIDE (CYCLOBENZAPRINE HYDROCHLORIDE) [Suspect]
     Active Substance: CYCLOBENZAPRINE HYDROCHLORIDE
     Indication: PRODUCT USED FOR UNKNOWN INDICATION
  29. ACETYLSALICYLIC ACID, DIPYRIDAMOLE (ACETYLSALICYLIC ACID, DIPYRIDAMOLE) [Suspect]
     Active Substance: ASPIRIN\DIPYRIDAMOLE
     Indication: CEREBROVASCULAR ACCIDENT
  30. GLYCERYL TRINITRATE (GLYCERYL TRINITRATE) [Suspect]
     Active Substance: NITROGLYCERIN
     Indication: CORONARY ARTERY DISEASE
  31. ROSUVASTATIN CALCIUM (ROSUVASTATIN CALCIUM) [Suspect]
     Active Substance: ROSUVASTATIN CALCIUM
     Indication: HYPERTENSION
     Route: 048
  32. CAFFEINE, PARACETAMOL (CAFFEINE, PARACETAMOL) [Suspect]
     Active Substance: ACETAMINOPHEN\CAFFEINE
     Indication: CHRONIC OBSTRUCTIVE PULMONARY DISEASE
  33. CAFFEINE, PARACETAMOL (CAFFEINE, PARACETAMOL) [Suspect]
     Active Substance: ACETAMINOPHEN\CAFFEINE
     Indication: CORONARY ARTERY DISEASE
  34. DILTIAZEM (DILTIAZEM) [Suspect]
     Active Substance: DILTIAZEM
     Indication: HYPERTENSION
  35. ROSUVASTATIN (ROSUVASTATIN) [Suspect]
     Active Substance: ROSUVASTATIN
     Indication: HYPERTENSION
     Route: 048
  36. CYCLOBENZAPRINE HYDROCHLORIDE (CYCLOBENZAPRINE HYDROCHLORIDE) [Suspect]
     Active Substance: CYCLOBENZAPRINE HYDROCHLORIDE
     Indication: FIBROMYALGIA
  37. CALCIUM CARBONATE (CALCIUM CARBONATE) [Suspect]
     Active Substance: CALCIUM CARBONATE
     Indication: PRODUCT USED FOR UNKNOWN INDICATION
  38. VACCINIUM OXYCOCCOS (VACCINIUM OXYCOCCOS) [Suspect]
     Active Substance: CRANBERRY
     Indication: PRODUCT USED FOR UNKNOWN INDICATION
  39. TIOTROPIUM BROMIDE MONOHYDRATE (TIOTROPIUM BROMIDE MONOHYDRATE) [Suspect]
     Active Substance: TIOTROPIUM BROMIDE MONOHYDRATE
     Indication: PRODUCT USED FOR UNKNOWN INDICATION
  40. POLYSORBATE 85 (POLYSORBATE 85) [Suspect]
     Active Substance: POLYSORBATE 85
     Indication: INSOMNIA
  41. OXAZEPAM (OXAZEPAM) [Suspect]
     Active Substance: OXAZEPAM
     Indication: PRODUCT USED FOR UNKNOWN INDICATION
  42. MORPHINE SULFATE (MORPHINE SULFATE) [Suspect]
     Active Substance: MORPHINE SULFATE
     Indication: PRODUCT USED FOR UNKNOWN INDICATION
  43. ASCORBIC ACID (ASCORBIC ACID) [Concomitant]
     Active Substance: ASCORBIC ACID
  44. LEVOFLOXACIN (MANUFACTURER UNKNOWN) (LEVOFLOXACIN) (LEVOFLOXACIN) [Suspect]
     Active Substance: LEVOFLOXACIN
     Indication: URINARY TRACT INFECTION
  45. LEVOTHYROXINE SODIUM (LEVOTHYROXINE SODIUM) [Suspect]
     Active Substance: LEVOTHYROXINE SODIUM
     Indication: PRODUCT USED FOR UNKNOWN INDICATION
  46. LEVOTHYROXINE SODIUM (LEVOTHYROXINE SODIUM) [Suspect]
     Active Substance: LEVOTHYROXINE SODIUM
     Indication: THYROID DISORDER
  47. GLUCOSAMINE (GLUCOSAMINE) [Suspect]
     Active Substance: GLUCOSAMINE
     Indication: PRODUCT USED FOR UNKNOWN INDICATION
  48. GLUCOSAMINE (GLUCOSAMINE) [Suspect]
     Active Substance: GLUCOSAMINE
     Indication: ARTHRITIS
  49. AMITRIPTYLINE HYDROCHLORIDE (AMITRIPTYLINE HYDROCHLORIDE) (TABLET) (AMITRIPTYLINE HYDROCHLORIDE) [Suspect]
     Active Substance: AMITRIPTYLINE HYDROCHLORIDE
     Indication: CHEST PAIN
  50. AMITRIPTYLINE HYDROCHLORIDE (AMITRIPTYLINE HYDROCHLORIDE) (TABLET) (AMITRIPTYLINE HYDROCHLORIDE) [Suspect]
     Active Substance: AMITRIPTYLINE HYDROCHLORIDE
     Indication: THYROID DISORDER
  51. AMITRIPTYLINE HYDROCHLORIDE (AMITRIPTYLINE HYDROCHLORIDE) (TABLET) (AMITRIPTYLINE HYDROCHLORIDE) [Suspect]
     Active Substance: AMITRIPTYLINE HYDROCHLORIDE
     Indication: PROPHYLAXIS
  52. AMITRIPTYLINE HYDROCHLORIDE (AMITRIPTYLINE HYDROCHLORIDE) (TABLET) (AMITRIPTYLINE HYDROCHLORIDE) [Suspect]
     Active Substance: AMITRIPTYLINE HYDROCHLORIDE
     Indication: CONSTIPATION
  53. DILTIAZEM HYDROCHLORIDE (DILTIAZEM HYDROCHLORIDE) [Suspect]
     Active Substance: DILTIAZEM HYDROCHLORIDE
     Indication: CORONARY ARTERY DISEASE
  54. DILTIAZEM HYDROCHLORIDE (DILTIAZEM HYDROCHLORIDE) [Suspect]
     Active Substance: DILTIAZEM HYDROCHLORIDE
     Indication: ANGINA PECTORIS
  55. LACTULOSE (LACTULOSE) [Suspect]
     Active Substance: LACTULOSE
     Indication: PRODUCT USED FOR UNKNOWN INDICATION
     Route: 048
  56. AMLODIPINE BESILATE (AMLODIPINE BESILATE) [Suspect]
     Active Substance: AMLODIPINE BESYLATE
     Indication: CONSTIPATION
  57. CARBAMAZEPINE (CARBAMAZEPINE) [Suspect]
     Active Substance: CARBAMAZEPINE
     Indication: SEIZURE PROPHYLAXIS
  58. MAGNESIUM HYDROXIDE (MAGNESIUM HYDROXIDE) [Suspect]
     Active Substance: MAGNESIUM HYDROXIDE
     Indication: PRODUCT USED FOR UNKNOWN INDICATION
  59. ROSUVASTATIN CALCIUM (ROSUVASTATIN CALCIUM) [Suspect]
     Active Substance: ROSUVASTATIN CALCIUM
     Indication: CORONARY ARTERY DISEASE
     Route: 048
  60. VACCINIUM MACROCARPON (VACCINIUM MACROCARPON) [Suspect]
     Active Substance: CRANBERRY
     Indication: PRODUCT USED FOR UNKNOWN INDICATION
  61. DILTIAZEM HYDROCHLORIDE (DILTIAZEM HYDROCHLORIDE) [Suspect]
     Active Substance: DILTIAZEM HYDROCHLORIDE
     Indication: PRODUCT USED FOR UNKNOWN INDICATION
  62. DILTIAZEM HYDROCHLORIDE (DILTIAZEM HYDROCHLORIDE) [Suspect]
     Active Substance: DILTIAZEM HYDROCHLORIDE
     Indication: CHEST PAIN
  63. CAFFEINE, PARACETAMOL (CAFFEINE, PARACETAMOL) [Suspect]
     Active Substance: ACETAMINOPHEN\CAFFEINE
     Indication: PRODUCT USED FOR UNKNOWN INDICATION
  64. DILTIAZEM (DILTIAZEM) [Suspect]
     Active Substance: DILTIAZEM
     Indication: CHEST PAIN
  65. ROSUVASTATIN (ROSUVASTATIN) [Suspect]
     Active Substance: ROSUVASTATIN
     Indication: CEREBROVASCULAR ACCIDENT
     Route: 048
  66. BISACODYL (BISACODYL) [Suspect]
     Active Substance: BISACODYL
     Indication: CONSTIPATION
  67. DIPYRIDAMOLE (DIPYRIDAMOLE) [Suspect]
     Active Substance: DIPYRIDAMOLE
     Indication: CEREBROVASCULAR ACCIDENT
  68. AMLODIPINE [Suspect]
     Active Substance: AMLODIPINE BESYLATE
     Indication: HYPERTENSION
  69. SALBUTAMOL SULFATE (SALBUTAMOL SULFATE) [Suspect]
     Active Substance: ALBUTEROL SULFATE
     Indication: PRODUCT USED FOR UNKNOWN INDICATION
  70. AMITRIPTYLINE HYDROCHLORIDE (AMITRIPTYLINE HYDROCHLORIDE) (TABLET) (AMITRIPTYLINE HYDROCHLORIDE) [Suspect]
     Active Substance: AMITRIPTYLINE HYDROCHLORIDE
     Indication: INSOMNIA
  71. DILTIAZEM HYDROCHLORIDE (DILTIAZEM HYDROCHLORIDE) [Suspect]
     Active Substance: DILTIAZEM HYDROCHLORIDE
     Indication: HYPERTENSION
  72. DILTIAZEM HYDROCHLORIDE (DILTIAZEM HYDROCHLORIDE) [Suspect]
     Active Substance: DILTIAZEM HYDROCHLORIDE
     Indication: CHEST PAIN
  73. PLANTAGO OVATA SEED HUSK (PLANTAGO OVATA SEED HUSK) [Concomitant]
  74. AMITRIPTYLINE HYDROCHLORIDE (AMITRIPTYLINE HYDROCHLORIDE) (TABLET) (AMITRIPTYLINE HYDROCHLORIDE) [Suspect]
     Active Substance: AMITRIPTYLINE HYDROCHLORIDE
     Indication: OEDEMA
  75. OXAZEPAM (OXAZEPAM) [Suspect]
     Active Substance: OXAZEPAM
     Indication: HYPERTENSION
  76. BISACODYL (BISACODYL) [Suspect]
     Active Substance: BISACODYL
     Indication: CONSTIPATION
  77. FUROSEMIDE (FUROSEMIDE) [Suspect]
     Active Substance: FUROSEMIDE
     Indication: ANGINA PECTORIS
  78. CYCLOBENZAPRINE (CYCLOBENZAPRINE) [Suspect]
     Active Substance: CYCLOBENZAPRINE
     Indication: FIBROMYALGIA
  79. CYCLOBENZAPRINE (CYCLOBENZAPRINE) [Suspect]
     Active Substance: CYCLOBENZAPRINE
     Indication: PAIN
  80. ACEBUTOLOL HYDROCHLORIDE (ACEBUTOLOL HYDROCHLORIDE) [Suspect]
     Active Substance: ACEBUTOLOL HYDROCHLORIDE
     Indication: CHEST PAIN
  81. ACETYLSALICYLIC ACID, CAFFEINE, PARACETAMOL (ACETYLSALICYLIC ACID, CAFFEINE, PARACETAMOL) [Suspect]
     Active Substance: ACETAMINOPHEN\ASPIRIN\CAFFEINE
     Indication: PRODUCT USED FOR UNKNOWN INDICATION
  82. GLYCERYL TRINITRATE (GLYCERYL TRINITRATE) [Suspect]
     Active Substance: NITROGLYCERIN
     Indication: PRODUCT USED FOR UNKNOWN INDICATION
  83. ROSUVASTATIN CALCIUM (ROSUVASTATIN CALCIUM) [Suspect]
     Active Substance: ROSUVASTATIN CALCIUM
     Indication: PRODUCT USED FOR UNKNOWN INDICATION
     Route: 048
  84. GLYCERYL TRINITRATE (GLYCERYL TRINITRATE) [Suspect]
     Active Substance: NITROGLYCERIN
     Indication: CORONARY ARTERY DISEASE
  85. GLYCERYL TRINITRATE (GLYCERYL TRINITRATE) [Suspect]
     Active Substance: NITROGLYCERIN
     Indication: PRODUCT USED FOR UNKNOWN INDICATION
  86. CAFFEINE, PARACETAMOL (CAFFEINE, PARACETAMOL) [Suspect]
     Active Substance: ACETAMINOPHEN\CAFFEINE
     Indication: PAIN
  87. DILTIAZEM (DILTIAZEM) [Suspect]
     Active Substance: DILTIAZEM
     Indication: ANGINA PECTORIS
  88. AMLODIPINE [Suspect]
     Active Substance: AMLODIPINE BESYLATE
     Indication: CORONARY ARTERY DISEASE
  89. GALANTAMINE HYDROBROMIDE (GALANTAMINE HYDROBROMIDE) [Suspect]
     Active Substance: GALANTAMINE HYDROBROMIDE
     Indication: PRODUCT USED FOR UNKNOWN INDICATION
  90. VACCINIUM MACROCARPON DRY JUICE (VACCINIUM MACROCARPON DRY JUICE) [Suspect]
     Active Substance: CRANBERRY
     Indication: BLADDER DISORDER
  91. POTASSIUM SORBATE (POTASSIUM SORBATE) [Suspect]
     Active Substance: POTASSIUM SORBATE
     Indication: PRODUCT USED FOR UNKNOWN INDICATION
  92. AMITRIPTYLINE HYDROCHLORIDE (AMITRIPTYLINE HYDROCHLORIDE) (TABLET) (AMITRIPTYLINE HYDROCHLORIDE) [Suspect]
     Active Substance: AMITRIPTYLINE HYDROCHLORIDE
     Indication: PAIN
  93. AMITRIPTYLINE HYDROCHLORIDE (AMITRIPTYLINE HYDROCHLORIDE) (TABLET) (AMITRIPTYLINE HYDROCHLORIDE) [Suspect]
     Active Substance: AMITRIPTYLINE HYDROCHLORIDE
     Indication: CORONARY ARTERY DISEASE
  94. FUROSEMIDE (FUROSEMIDE) [Suspect]
     Active Substance: FUROSEMIDE
     Indication: OEDEMA
  95. FUROSEMIDE (FUROSEMIDE) [Suspect]
     Active Substance: FUROSEMIDE
     Indication: CORONARY ARTERY DISEASE
  96. QUINAPRIL HYDROCHLORIDE (QUINAPRIL HYDROCHLORIDE) [Suspect]
     Active Substance: QUINAPRIL HYDROCHLORIDE
     Indication: HYPERTENSION
  97. ACEBUTOLOL HYDROCHLORIDE (ACEBUTOLOL HYDROCHLORIDE) [Suspect]
     Active Substance: ACEBUTOLOL HYDROCHLORIDE
     Indication: PRODUCT USED FOR UNKNOWN INDICATION
  98. CYCLOBENZAPRINE HYDROCHLORIDE (CYCLOBENZAPRINE HYDROCHLORIDE) [Suspect]
     Active Substance: CYCLOBENZAPRINE HYDROCHLORIDE
     Indication: FIBROMYALGIA
  99. CYCLOBENZAPRINE HYDROCHLORIDE (CYCLOBENZAPRINE HYDROCHLORIDE) [Suspect]
     Active Substance: CYCLOBENZAPRINE HYDROCHLORIDE
     Indication: PAIN
  100. GLYCERYL TRINITRATE (GLYCERYL TRINITRATE) [Suspect]
     Active Substance: NITROGLYCERIN
     Indication: CHEST PAIN
  101. MAGNESIUM HYDROXIDE (MAGNESIUM HYDROXIDE) [Suspect]
     Active Substance: MAGNESIUM HYDROXIDE
     Indication: CONSTIPATION
  102. ROSUVASTATIN CALCIUM (ROSUVASTATIN CALCIUM) [Suspect]
     Active Substance: ROSUVASTATIN CALCIUM
     Indication: CEREBROVASCULAR ACCIDENT
     Route: 048
  103. GLYCERYL TRINITRATE (GLYCERYL TRINITRATE) [Suspect]
     Active Substance: NITROGLYCERIN
     Indication: ANGINA PECTORIS
  104. DILTIAZEM HYDROCHLORIDE (DILTIAZEM HYDROCHLORIDE) [Suspect]
     Active Substance: DILTIAZEM HYDROCHLORIDE
     Indication: HYPERTENSION
  105. ACETYLSALICYLIC ACID, DIPYRIDAMOLE (ACETYLSALICYLIC ACID, DIPYRIDAMOLE) [Suspect]
     Active Substance: ASPIRIN\DIPYRIDAMOLE
     Indication: CEREBROVASCULAR ACCIDENT
  106. CYCLOBENZAPRINE HYDROCHLORIDE (CYCLOBENZAPRINE HYDROCHLORIDE) [Suspect]
     Active Substance: CYCLOBENZAPRINE HYDROCHLORIDE
     Indication: PRODUCT USED FOR UNKNOWN INDICATION
  107. SALBUTAMOL (SALBUTAMOL) [Suspect]
     Active Substance: ALBUTEROL
     Indication: ANGINA PECTORIS
  108. CARBAMAZEPINE (CARBAMAZEPINE) [Suspect]
     Active Substance: CARBAMAZEPINE
     Indication: PROPHYLAXIS
  109. ASPIRIN. [Suspect]
     Active Substance: ASPIRIN
     Indication: CORONARY ARTERY DISEASE
  110. ZINC (ZINC) [Concomitant]
  111. GLUCOSAMINE (GLUCOSAMINE) [Suspect]
     Active Substance: GLUCOSAMINE
     Indication: PAIN
  112. AMITRIPTYLINE HYDROCHLORIDE (AMITRIPTYLINE HYDROCHLORIDE) (TABLET) (AMITRIPTYLINE HYDROCHLORIDE) [Suspect]
     Active Substance: AMITRIPTYLINE HYDROCHLORIDE
     Indication: ARTHRITIS
  113. AMITRIPTYLINE HYDROCHLORIDE (AMITRIPTYLINE HYDROCHLORIDE) (TABLET) (AMITRIPTYLINE HYDROCHLORIDE) [Suspect]
     Active Substance: AMITRIPTYLINE HYDROCHLORIDE
     Indication: RADIOACTIVE IODINE THERAPY
  114. OXAZEPAM (OXAZEPAM) [Suspect]
     Active Substance: OXAZEPAM
     Indication: PRODUCT USED FOR UNKNOWN INDICATION
  115. OXAZEPAM (OXAZEPAM) [Suspect]
     Active Substance: OXAZEPAM
     Indication: INSOMNIA
  116. QUINAPRIL HYDROCHLORIDE (QUINAPRIL HYDROCHLORIDE) [Suspect]
     Active Substance: QUINAPRIL HYDROCHLORIDE
     Indication: CORONARY ARTERY DISEASE
  117. QUINAPRIL HYDROCHLORIDE (QUINAPRIL HYDROCHLORIDE) [Suspect]
     Active Substance: QUINAPRIL HYDROCHLORIDE
     Indication: CHEST PAIN
  118. CARBAMAZEPINE (CARBAMAZEPINE) [Suspect]
     Active Substance: CARBAMAZEPINE
     Indication: FIBROMYALGIA
  119. CYCLOBENZAPRINE (CYCLOBENZAPRINE) [Suspect]
     Active Substance: CYCLOBENZAPRINE
     Indication: SEIZURE PROPHYLAXIS
  120. CYCLOBENZAPRINE (CYCLOBENZAPRINE) [Suspect]
     Active Substance: CYCLOBENZAPRINE
     Indication: SEIZURE
  121. DIPYRIDAMOLE (DIPYRIDAMOLE) [Suspect]
     Active Substance: DIPYRIDAMOLE
     Indication: CEREBROVASCULAR ACCIDENT
  122. ROSUVASTATIN CALCIUM (ROSUVASTATIN CALCIUM) [Suspect]
     Active Substance: ROSUVASTATIN CALCIUM
     Indication: ANGINA PECTORIS
     Route: 048
  123. ROSUVASTATIN (ROSUVASTATIN) [Suspect]
     Active Substance: ROSUVASTATIN
     Indication: INSOMNIA
     Route: 048
  124. SALBUTAMOL (SALBUTAMOL) [Suspect]
     Active Substance: ALBUTEROL
     Indication: PRODUCT USED FOR UNKNOWN INDICATION
  125. SALBUTAMOL (SALBUTAMOL) [Suspect]
     Active Substance: ALBUTEROL
     Indication: HYPERTENSION
  126. SALBUTAMOL (SALBUTAMOL) [Suspect]
     Active Substance: ALBUTEROL
     Indication: CHEST PAIN
  127. TIOTROPIUM BROMIDE MONOHYDRATE (TIOTROPIUM BROMIDE MONOHYDRATE) [Suspect]
     Active Substance: TIOTROPIUM BROMIDE MONOHYDRATE
     Indication: CHRONIC OBSTRUCTIVE PULMONARY DISEASE
  128. CAFFEINE (CAFFEINE) [Suspect]
     Active Substance: CAFFEINE
     Indication: PRODUCT USED FOR UNKNOWN INDICATION
  129. AMITRIPTYLINE HYDROCHLORIDE (AMITRIPTYLINE HYDROCHLORIDE) (TABLET) (AMITRIPTYLINE HYDROCHLORIDE) [Suspect]
     Active Substance: AMITRIPTYLINE HYDROCHLORIDE
     Indication: DEMENTIA
  130. AMITRIPTYLINE HYDROCHLORIDE (AMITRIPTYLINE HYDROCHLORIDE) (TABLET) (AMITRIPTYLINE HYDROCHLORIDE) [Suspect]
     Active Substance: AMITRIPTYLINE HYDROCHLORIDE
     Indication: FIBROMYALGIA
  131. DILTIAZEM HYDROCHLORIDE (DILTIAZEM HYDROCHLORIDE) [Suspect]
     Active Substance: DILTIAZEM HYDROCHLORIDE
     Indication: CHEST PAIN
  132. DILTIAZEM HYDROCHLORIDE (DILTIAZEM HYDROCHLORIDE) [Suspect]
     Active Substance: DILTIAZEM HYDROCHLORIDE
     Indication: HYPERTENSION
  133. AMLODIPINE BESILATE (AMLODIPINE BESILATE) [Suspect]
     Active Substance: AMLODIPINE BESYLATE
     Indication: HYPERTENSION
  134. GALANTAMINE HYDROBROMIDE (GALANTAMINE HYDROBROMIDE) [Suspect]
     Active Substance: GALANTAMINE HYDROBROMIDE
     Indication: PRODUCT USED FOR UNKNOWN INDICATION
  135. CARBAMAZEPINE (CARBAMAZEPINE) [Suspect]
     Active Substance: CARBAMAZEPINE
     Indication: SEIZURE
  136. ACEBUTOLOL HYDROCHLORIDE (ACEBUTOLOL HYDROCHLORIDE) [Suspect]
     Active Substance: ACEBUTOLOL HYDROCHLORIDE
     Indication: ANGINA PECTORIS
  137. SALBUTAMOL SULFATE (SALBUTAMOL SULFATE) [Suspect]
     Active Substance: ALBUTEROL SULFATE
     Indication: PRODUCT USED FOR UNKNOWN INDICATION
  138. DILTIAZEM HYDROCHLORIDE (DILTIAZEM HYDROCHLORIDE) [Suspect]
     Active Substance: DILTIAZEM HYDROCHLORIDE
     Indication: ANGINA PECTORIS
  139. CAFFEINE, PARACETAMOL (CAFFEINE, PARACETAMOL) [Suspect]
     Active Substance: ACETAMINOPHEN\CAFFEINE
     Indication: CHEST PAIN
  140. SALBUTAMOL (SALBUTAMOL) [Suspect]
     Active Substance: ALBUTEROL
     Indication: CORONARY ARTERY DISEASE
  141. PARACETAMOL (PARACETAMOL) [Suspect]
     Active Substance: ACETAMINOPHEN
     Indication: PRODUCT USED FOR UNKNOWN INDICATION
  142. GLYCEROL (GLYCEROL) [Suspect]
     Active Substance: GLYCERIN
     Indication: PRODUCT USED FOR UNKNOWN INDICATION
  143. CARBAMAZEPINE (CARBAMAZEPINE) [Suspect]
     Active Substance: CARBAMAZEPINE
     Indication: PRODUCT USED FOR UNKNOWN INDICATION
  144. AMITRIPTYLINE HYDROCHLORIDE (AMITRIPTYLINE HYDROCHLORIDE) (TABLET) (AMITRIPTYLINE HYDROCHLORIDE) [Suspect]
     Active Substance: AMITRIPTYLINE HYDROCHLORIDE
     Indication: HYPERTENSION
  145. AMITRIPTYLINE HYDROCHLORIDE (AMITRIPTYLINE HYDROCHLORIDE) (TABLET) (AMITRIPTYLINE HYDROCHLORIDE) [Suspect]
     Active Substance: AMITRIPTYLINE HYDROCHLORIDE
     Indication: INSOMNIA
  146. OMEPRAZOLE (OMEPRAZOLE) [Suspect]
     Active Substance: OMEPRAZOLE
     Indication: DUODENAL ULCER
     Route: 048
  147. OMEPRAZOLE (OMEPRAZOLE) [Suspect]
     Active Substance: OMEPRAZOLE
     Indication: SMALL INTESTINE CARCINOMA
     Route: 048
  148. AMLODIPINE BESILATE (AMLODIPINE BESILATE) [Suspect]
     Active Substance: AMLODIPINE BESYLATE
     Indication: CORONARY ARTERY DISEASE
  149. AMLODIPINE BESILATE (AMLODIPINE BESILATE) [Suspect]
     Active Substance: AMLODIPINE BESYLATE
     Indication: ANGINA PECTORIS
  150. QUINAPRIL HYDROCHLORIDE (QUINAPRIL HYDROCHLORIDE) [Suspect]
     Active Substance: QUINAPRIL HYDROCHLORIDE
     Indication: ANGINA PECTORIS
  151. CARBAMAZEPINE (CARBAMAZEPINE) [Suspect]
     Active Substance: CARBAMAZEPINE
     Indication: PRODUCT USED FOR UNKNOWN INDICATION
  152. CYCLOBENZAPRINE (CYCLOBENZAPRINE) [Suspect]
     Active Substance: CYCLOBENZAPRINE
     Indication: PRODUCT USED FOR UNKNOWN INDICATION
  153. TIOTROPIUM BROMIDE (TIOTROPIUM BROMIDE) [Suspect]
     Active Substance: TIOTROPIUM BROMIDE
     Indication: CHRONIC OBSTRUCTIVE PULMONARY DISEASE
  154. TIOTROPIUM BROMIDE (TIOTROPIUM BROMIDE) [Suspect]
     Active Substance: TIOTROPIUM BROMIDE
     Indication: PRODUCT USED FOR UNKNOWN INDICATION
  155. ROSUVASTATIN CALCIUM (ROSUVASTATIN CALCIUM) [Suspect]
     Active Substance: ROSUVASTATIN CALCIUM
     Indication: CHRONIC OBSTRUCTIVE PULMONARY DISEASE
     Route: 048
  156. DILTIAZEM HYDROCHLORIDE (DILTIAZEM HYDROCHLORIDE) [Suspect]
     Active Substance: DILTIAZEM HYDROCHLORIDE
     Indication: CORONARY ARTERY DISEASE
  157. DILTIAZEM (DILTIAZEM) [Suspect]
     Active Substance: DILTIAZEM
     Indication: CORONARY ARTERY DISEASE
  158. ROSUVASTATIN (ROSUVASTATIN) [Suspect]
     Active Substance: ROSUVASTATIN
     Indication: PRODUCT USED FOR UNKNOWN INDICATION
     Route: 048
  159. BISACODYL (BISACODYL) [Suspect]
     Active Substance: BISACODYL
     Indication: CONSTIPATION
  160. DILTIAZEM HYDROCHLORIDE (DILTIAZEM HYDROCHLORIDE) [Suspect]
     Active Substance: DILTIAZEM HYDROCHLORIDE
     Indication: ANGINA PECTORIS
  161. ASPIRIN. [Suspect]
     Active Substance: ASPIRIN
     Indication: HYPERTENSION
  162. ASPIRIN. [Suspect]
     Active Substance: ASPIRIN
     Indication: ANGINA PECTORIS
  163. GLUCOSAMINE SULFATE (GLUCOSAMINE SULFATE) [Suspect]
     Active Substance: GLUCOSAMINE SULFATE
     Indication: PAIN

REACTIONS (12)
  - Balance disorder [None]
  - Mobility decreased [None]
  - Creatinine renal clearance decreased [None]
  - Hypotension [None]
  - Orthostatic hypotension [None]
  - Depressed level of consciousness [None]
  - Blood calcium decreased [None]
  - Sedation [None]
  - Cognitive disorder [None]
  - Sedation complication [None]
  - Toxicity to various agents [None]
  - Fall [None]
